FAERS Safety Report 7448521-1 (Version None)
Quarter: 2011Q2

REPORT INFORMATION
  Report Type: 
  Country: None (occurrence: None)
  Receive Date: 20110429
  Receipt Date: 20100611
  Transmission Date: 20111010
  Serious: No
  Sender: FDA-Public Use
  Company Number: US-ASTRAZENECA-2010SE27643

PATIENT
  Sex: Female

DRUGS (1)
  1. NEXIUM [Suspect]
     Indication: OESOPHAGITIS
     Route: 048

REACTIONS (3)
  - TREMOR [None]
  - MUSCLE TWITCHING [None]
  - EXTRAPYRAMIDAL DISORDER [None]
